FAERS Safety Report 4342861-0 (Version None)
Quarter: 2004Q2

REPORT INFORMATION
  Report Type: 
  Country: None (occurrence: None)
  Receive Date: 20040416
  Receipt Date: 20040408
  Transmission Date: 20050107
  Serious: Yes (Hospitalization)
  Sender: FDA-Public Use
  Company Number: US-JNJFOC-20040402286

PATIENT
  Age: 50 Year
  Sex: Female

DRUGS (1)
  1. DURAGESIC [Suspect]
     Indication: PAIN
     Dosage: 75 UG/HR, 2 IN 72 HOUR, TRANSDERMAL
     Route: 062
     Dates: start: 19960101

REACTIONS (3)
  - ANAEMIA [None]
  - DYSPNOEA [None]
  - FATIGUE [None]
